FAERS Safety Report 6948967 (Version 1)
Quarter: 2020Q3

REPORT INFORMATION
  Report Type: Spontaneous
  Country: None (occurrence: JP)
  Receive Date: 20090323
  Receipt Date: 20090323
  Transmission Date: 20201105
  Serious: Yes (Life-Threatening, Other)
  Sender: FDA-Public Use
  Company Number: JP-ROXANE LABORATORIES, INC.-2009-RO-00244RO

PATIENT
  Age: 60 Year
  Sex: Female
  Weight: 54 kg

DRUGS (25)
  1. LIDOCAINE. [Suspect]
     Active Substance: LIDOCAINE
     Indication: ARTERIOSPASM CORONARY
  2. ATROPINE SULFATE. [Suspect]
     Active Substance: ATROPINE SULFATE
     Indication: PREMEDICATION
     Route: 030
  3. ISOSORBIDE DINITRATE. [Suspect]
     Active Substance: ISOSORBIDE DINITRATE
     Indication: PROPHYLAXIS
     Route: 062
  4. EPINEPHRINE. [Suspect]
     Active Substance: EPINEPHRINE
     Indication: VENTRICULAR TACHYCARDIA
     Route: 042
  5. EPINEPHRINE. [Suspect]
     Active Substance: EPINEPHRINE
  6. DOPAMINE [Suspect]
     Active Substance: DOPAMINE HYDROCHLORIDE
     Indication: CARDIOVASCULAR DISORDER
  7. NICARDIPINE HYDROCHLORIDE. [Suspect]
     Active Substance: NICARDIPINE HYDROCHLORIDE
     Indication: ARTERIOSPASM CORONARY
  8. EPHEDRINE. [Suspect]
     Active Substance: EPHEDRINE
     Indication: HYPOTENSION
     Route: 042
  9. DILTIAZEM. [Suspect]
     Active Substance: DILTIAZEM
     Indication: CARDIOVASCULAR DISORDER
  10. PROPRANOLOL [Suspect]
     Active Substance: PROPRANOLOL HYDROCHLORIDE
     Indication: PROCEDURAL HYPOTENSION
     Route: 042
  11. FENTANYL. [Suspect]
     Active Substance: FENTANYL
     Indication: INDUCTION OF ANAESTHESIA
     Route: 042
  12. DINOPROSTONE. [Suspect]
     Active Substance: DINOPROSTONE
     Indication: PROCEDURAL HYPOTENSION
  13. DILTIAZEM. [Suspect]
     Active Substance: DILTIAZEM
     Indication: ARTERIOSPASM CORONARY
  14. PHENYLEPHRINE [Suspect]
     Active Substance: PHENYLEPHRINE HYDROCHLORIDE
     Indication: HYPOTENSION
     Route: 042
  15. LIDOCAINE. [Suspect]
     Active Substance: LIDOCAINE
     Indication: VENTRICULAR TACHYCARDIA
     Route: 042
  16. LIDOCAINE. [Suspect]
     Active Substance: LIDOCAINE
     Indication: CARDIOVASCULAR DISORDER
     Route: 042
  17. VECURONIUM BROMIDE. [Suspect]
     Active Substance: VECURONIUM BROMIDE
     Indication: INDUCTION OF ANAESTHESIA
     Route: 042
  18. MEPERIDINE [Suspect]
     Active Substance: MEPERIDINE
     Indication: PREMEDICATION
     Route: 030
  19. NITROUS OXIDE. [Suspect]
     Active Substance: NITROUS OXIDE
     Indication: MAINTENANCE OF ANAESTHESIA
     Route: 055
  20. MIDAZOLAM HYDROCHLORIDE. [Suspect]
     Active Substance: MIDAZOLAM HYDROCHLORIDE
     Indication: PREMEDICATION
     Route: 030
  21. FAMOTIDINE. [Suspect]
     Active Substance: FAMOTIDINE
     Indication: PREMEDICATION
     Route: 048
  22. PROPOFOL. [Suspect]
     Active Substance: PROPOFOL
     Indication: INDUCTION AND MAINTENANCE OF ANAESTHESIA
     Route: 042
  23. PROPOFOL. [Suspect]
     Active Substance: PROPOFOL
  24. DOPAMINE [Suspect]
     Active Substance: DOPAMINE HYDROCHLORIDE
     Indication: ARTERIOSPASM CORONARY
  25. NICARDIPINE HYDROCHLORIDE. [Suspect]
     Active Substance: NICARDIPINE HYDROCHLORIDE
     Indication: CARDIOVASCULAR DISORDER

REACTIONS (7)
  - Cardiac arrest [Recovered/Resolved]
  - Ventricular tachycardia [Recovered/Resolved]
  - Electrocardiogram ST segment elevation [Recovered/Resolved]
  - Hypertension [Unknown]
  - Hypotension [Recovered/Resolved]
  - Drug ineffective [Unknown]
  - Arteriospasm coronary [Recovered/Resolved]
